FAERS Safety Report 15878282 (Version 3)
Quarter: 2019Q2

REPORT INFORMATION
  Report Type: Spontaneous
  Country: US (occurrence: US)
  Receive Date: 20190128
  Receipt Date: 20190411
  Transmission Date: 20190711
  Serious: No
  Sender: FDA-Public Use
  Company Number: US-PFIZER INC-2019033358

PATIENT
  Age: 83 Year
  Sex: Female
  Weight: 50.12 kg

DRUGS (1)
  1. PREMARIN [Suspect]
     Active Substance: ESTROGENS, CONJUGATED
     Indication: HOT FLUSH
     Dosage: 0.3 MG, UNK
     Dates: start: 2018

REACTIONS (4)
  - Nervousness [Unknown]
  - Dysgraphia [Recovered/Resolved]
  - Pain [Unknown]
  - Limb injury [Recovered/Resolved]
